FAERS Safety Report 6438476-0 (Version None)
Quarter: 2009Q4

REPORT INFORMATION
  Report Type: 
  Country: None (occurrence: None)
  Receive Date: 20091110
  Receipt Date: 20090928
  Transmission Date: 20100525
  Serious: Yes (Hospitalization)
  Sender: FDA-Public Use
  Company Number: IDA-00283

PATIENT
  Age: 57 Year
  Sex: Male

DRUGS (6)
  1. PROPRANOLOL [Suspect]
     Indication: VARICES OESOPHAGEAL
     Dosage: 160 MG DAILY
     Dates: start: 20090101
  2. FLAGYL [Concomitant]
     Indication: DIARRHOEA
     Dosage: 500 MG TID
     Dates: start: 20090205, end: 20090208
  3. PANTOPRAZOLE SODIUM [Suspect]
     Dosage: 40 MG DAILY ORAL
     Route: 048
     Dates: start: 20090208, end: 20090208
  4. NOROXIN [Suspect]
     Indication: PROPHYLAXIS
     Dosage: 400 MG BID ORAL
     Route: 048
     Dates: start: 20090202, end: 20090208
  5. ALDACTONE [Suspect]
     Indication: ASCITES
     Dosage: 50 MG BID ORAL
     Dates: start: 20090202, end: 20090210
  6. LASIX [Suspect]
     Indication: OEDEMA
     Dosage: 20 MG BID ORAL
     Route: 048
     Dates: start: 20090204, end: 20090210

REACTIONS (5)
  - ASCITES [None]
  - HAEMOGLOBIN DECREASED [None]
  - LEUKOPENIA [None]
  - OEDEMA [None]
  - RED BLOOD CELL COUNT DECREASED [None]
